FAERS Safety Report 24308375 (Version 1)
Quarter: 2024Q3

REPORT INFORMATION
  Report Type: Spontaneous
  Country: US (occurrence: US)
  Receive Date: 20240911
  Receipt Date: 20240911
  Transmission Date: 20241017
  Serious: Yes (Other)
  Sender: PFIZER
  Company Number: US-PFIZER INC-PV202300158592

PATIENT
  Age: 78 Year
  Sex: Female
  Weight: 69.17 kg

DRUGS (3)
  1. IBRANCE [Suspect]
     Active Substance: PALBOCICLIB
     Dosage: 100 MG, 1X/DAY
     Route: 048
  2. IBRANCE [Suspect]
     Active Substance: PALBOCICLIB
     Dosage: TAKING 2 WEEKS ON AND 2 WEEKS OFF
     Dates: start: 20240829
  3. NEURONTIN [Concomitant]
     Active Substance: GABAPENTIN
     Dosage: 3 CAPSULES EVERY MORNING AND 2 CAPSULES MID-DAY AND 3 CAPSULES EVERY EVENING
     Route: 048

REACTIONS (2)
  - White blood cell count decreased [Unknown]
  - Diarrhoea [Recovered/Resolved]

NARRATIVE: CASE EVENT DATE: 20240101
